FAERS Safety Report 10428522 (Version 1)
Quarter: 2014Q3

REPORT INFORMATION
  Report Type: Report from Study
  Country: VE (occurrence: VE)
  Receive Date: 20140903
  Receipt Date: 20140903
  Transmission Date: 20150326
  Serious: Yes (Hospitalization)
  Sender: FDA-Public Use
  Company Number: PHHY2014VE111063

PATIENT
  Age: 74 Year
  Sex: Female

DRUGS (5)
  1. ACLASTA [Suspect]
     Active Substance: ZOLEDRONIC ACID
     Dosage: 5 MG, ANNUALLY
     Route: 042
     Dates: start: 20140311
  2. VARTALON DUO [Concomitant]
     Indication: OSTEOPOROSIS
     Dosage: 1 PACKAGE DAILY DISOLVED IN HALF A GLASS OF WATER
  3. PROTELOS [Concomitant]
     Active Substance: STRONTIUM RANELATE
     Indication: OSTEOPOROSIS
     Dosage: 1 PACKAGE DAILY DISOLVED IN HALF A GLASS OF WATER
  4. ACLASTA [Suspect]
     Active Substance: ZOLEDRONIC ACID
     Indication: OSTEOPOROSIS
     Dosage: 5 MG, ANNUALLY
     Route: 042
     Dates: start: 20110505
  5. CALCIBON D [Concomitant]
     Indication: OSTEOPOROSIS
     Dosage: 1 DF, DAILY

REACTIONS (4)
  - Pain in extremity [Recovering/Resolving]
  - Fall [Recovering/Resolving]
  - Femur fracture [Recovering/Resolving]
  - Arthralgia [Recovering/Resolving]

NARRATIVE: CASE EVENT DATE: 20140615
